FAERS Safety Report 9725659 (Version 1)
Quarter: 2013Q4

REPORT INFORMATION
  Report Type: Spontaneous
  Country: US (occurrence: None)
  Receive Date: 20131202
  Receipt Date: 20131202
  Transmission Date: 20140711
  Serious: Yes (Disabling)
  Sender: FDA-Public Use
  Company Number: None

PATIENT
  Age: 57 Year
  Sex: Female
  Weight: 64.86 kg

DRUGS (1)
  1. PAXIL CR [Suspect]
     Indication: DEPRESSION
     Dosage: 1 TABLET ONCE A DAY, ONCE DAILY, TAKEN BY MOUTH
     Dates: start: 20040304, end: 20131127

REACTIONS (5)
  - Tremor [None]
  - Muscular weakness [None]
  - Muscular weakness [None]
  - Tremor [None]
  - Product quality issue [None]
